FAERS Safety Report 5337576-6 (Version None)
Quarter: 2007Q2

REPORT INFORMATION
  Report Type: 
  Country: None (occurrence: None)
  Receive Date: 20070529
  Receipt Date: 20070511
  Transmission Date: 20071010
  Serious: Yes (Hospitalization)
  Sender: FDA-Public Use
  Company Number: -MERCK-0701HUN00003

PATIENT
  Age: 70 Year
  Sex: Female

DRUGS (4)
  1. TIMOPTIC [Suspect]
     Indication: OPEN ANGLE GLAUCOMA
     Route: 047
     Dates: start: 20021201, end: 20030604
  2. TIMOPTIC [Suspect]
     Route: 047
     Dates: start: 20021201
  3. XALATAN [Suspect]
     Indication: OPEN ANGLE GLAUCOMA
     Route: 047
     Dates: start: 20021201, end: 20030604
  4. XALATAN [Suspect]
     Route: 047
     Dates: start: 20021201

REACTIONS (1)
  - DRUG INEFFECTIVE [None]
